FAERS Safety Report 19030714 (Version 1)
Quarter: 2021Q1

REPORT INFORMATION
  Report Type: Spontaneous
  Country: US (occurrence: US)
  Receive Date: 20210319
  Receipt Date: 20210319
  Transmission Date: 20210420
  Serious: Yes (Other)
  Sender: FDA-Public Use
  Company Number: None

PATIENT
  Age: 41 Year
  Sex: Female
  Weight: 76.05 kg

DRUGS (14)
  1. VIIBRYD [Concomitant]
     Active Substance: VILAZODONE HYDROCHLORIDE
  2. BENTYL [Concomitant]
     Active Substance: DICYCLOMINE HYDROCHLORIDE
  3. TYLENOL [Concomitant]
     Active Substance: ACETAMINOPHEN
  4. NSAIDS [Concomitant]
     Active Substance: UNSPECIFIED INGREDIENT
  5. WELLBUTRIN XL [Concomitant]
     Active Substance: BUPROPION HYDROCHLORIDE
  6. LAMICTAL [Concomitant]
     Active Substance: LAMOTRIGINE
  7. ORAL CONTRACEPTIVE [Concomitant]
     Active Substance: UNSPECIFIED INGREDIENT
  8. TOPAMAX [Concomitant]
     Active Substance: TOPIRAMATE
  9. RESTORIL [Concomitant]
     Active Substance: TEMAZEPAM
  10. FLEXERIL [Concomitant]
     Active Substance: CYCLOBENZAPRINE HYDROCHLORIDE
  11. XANAX [Concomitant]
     Active Substance: ALPRAZOLAM
  12. KRATOM GREEN MAGNA DA [Suspect]
     Active Substance: HERBALS\MITRAGYNINE
     Indication: WEIGHT DECREASED
     Dosage: ?          QUANTITY:480 CAPSULE(S);OTHER FREQUENCY:3 TO 4 TIMES DAILY;?
     Route: 048
     Dates: start: 20200301, end: 20210312
  13. KRATOM GREEN MAGNA DA [Suspect]
     Active Substance: HERBALS\MITRAGYNINE
     Indication: PAIN
     Dosage: ?          QUANTITY:480 CAPSULE(S);OTHER FREQUENCY:3 TO 4 TIMES DAILY;?
     Route: 048
     Dates: start: 20200301, end: 20210312
  14. REXULTI [Concomitant]
     Active Substance: BREXPIPRAZOLE

REACTIONS (3)
  - Urticaria [None]
  - Drug hypersensitivity [None]
  - Withdrawal syndrome [None]

NARRATIVE: CASE EVENT DATE: 20210303
